FAERS Safety Report 9183962 (Version 1)
Quarter: 2013Q1

REPORT INFORMATION
  Report Type: Spontaneous
  Country: US (occurrence: US)
  Receive Date: 20130322
  Receipt Date: 20130322
  Transmission Date: 20140127
  Serious: No
  Sender: FDA-Public Use
  Company Number: US-BRISTOL-MYERS SQUIBB COMPANY-16677668

PATIENT
  Age: 60 Year
  Sex: Male

DRUGS (2)
  1. ERBITUX [Suspect]
     Dosage: NO OF INF-4. FREQ: EVERY OTHER FRIDAY. LAST DOSE: 8JUN12
  2. IRINOTECAN [Suspect]
     Dosage: DOSE DELAYED

REACTIONS (2)
  - Herpes zoster [Unknown]
  - White blood cell count decreased [Unknown]
